FAERS Safety Report 8152665-9 (Version None)
Quarter: 2012Q1

REPORT INFORMATION
  Report Type: 
  Country: None (occurrence: None)
  Receive Date: 20120221
  Receipt Date: 20120210
  Transmission Date: 20120608
  Serious: Yes (Hospitalization, Other)
  Sender: FDA-Public Use
  Company Number: PHHY2012DK011799

PATIENT
  Sex: Female
  Weight: 65 kg

DRUGS (1)
  1. DICLOXACILLIN [Suspect]
     Indication: WOUND INFECTION
     Dosage: 3 G, DAILY
     Route: 048
     Dates: start: 20120201, end: 20120205

REACTIONS (3)
  - RENAL DISORDER [None]
  - GASTROENTERITIS [None]
  - BLOOD CREATININE INCREASED [None]
